FAERS Safety Report 5322838-9 (Version None)
Quarter: 2007Q2

REPORT INFORMATION
  Report Type: 
  Country: None (occurrence: None)
  Receive Date: 20070511
  Receipt Date: 20070430
  Transmission Date: 20071010
  Serious: Yes (Other)
  Sender: FDA-Public Use
  Company Number: US-PFIZER INC-2007035444

PATIENT
  Sex: Male
  Weight: 55.454 kg

DRUGS (4)
  1. CHANTIX [Suspect]
     Indication: SMOKING CESSATION THERAPY
  2. SPIRIVA [Interacting]
     Indication: CHRONIC OBSTRUCTIVE PULMONARY DISEASE
  3. ADVAIR DISKUS 100/50 [Interacting]
     Indication: CHRONIC OBSTRUCTIVE PULMONARY DISEASE
  4. XOPENEX [Interacting]
     Indication: CHRONIC OBSTRUCTIVE PULMONARY DISEASE

REACTIONS (6)
  - BRONCHITIS [None]
  - BRONCHOSPASM [None]
  - DRUG INTERACTION [None]
  - DYSPNOEA [None]
  - HYPERSENSITIVITY [None]
  - WEIGHT INCREASED [None]
